FAERS Safety Report 17907573 (Version 11)
Quarter: 2022Q3

REPORT INFORMATION
  Report Type: Report from Study
  Country: US (occurrence: US)
  Receive Date: 20200617
  Receipt Date: 20220704
  Transmission Date: 20221027
  Serious: Yes (Other)
  Sender: FDA-Public Use
  Company Number: US-SHIRE-US202019756

PATIENT
  Age: 52 Year
  Sex: Female
  Weight: 68 kg

DRUGS (41)
  1. HUMAN IMMUNOGLOBULIN G [Suspect]
     Active Substance: HUMAN IMMUNOGLOBULIN G
     Indication: Immunodeficiency common variable
     Dosage: 240 GRAM, Q4WEEKS
     Route: 042
     Dates: start: 20150422
  2. HUMAN IMMUNOGLOBULIN G [Suspect]
     Active Substance: HUMAN IMMUNOGLOBULIN G
     Indication: Immunodeficiency common variable
     Dosage: 240 GRAM, Q4WEEKS
     Route: 042
     Dates: start: 20150422
  3. HUMAN IMMUNOGLOBULIN G [Suspect]
     Active Substance: HUMAN IMMUNOGLOBULIN G
     Indication: Aplasia pure red cell
     Dosage: 200 GRAM, Q4WEEKS
     Route: 042
     Dates: start: 20150428
  4. HUMAN IMMUNOGLOBULIN G [Suspect]
     Active Substance: HUMAN IMMUNOGLOBULIN G
     Indication: Aplasia pure red cell
     Dosage: 200 GRAM, Q4WEEKS
     Route: 042
     Dates: start: 20150428
  5. HUMAN IMMUNOGLOBULIN G [Suspect]
     Active Substance: HUMAN IMMUNOGLOBULIN G
     Dosage: 200 MILLIGRAM
     Route: 042
     Dates: start: 20150428
  6. HUMAN IMMUNOGLOBULIN G [Suspect]
     Active Substance: HUMAN IMMUNOGLOBULIN G
     Dosage: 200 MILLIGRAM
     Route: 042
     Dates: start: 20150428
  7. HUMAN IMMUNOGLOBULIN G [Suspect]
     Active Substance: HUMAN IMMUNOGLOBULIN G
     Dosage: 200 GRAM, Q4WEEKS
     Route: 042
     Dates: start: 20160408
  8. HUMAN IMMUNOGLOBULIN G [Suspect]
     Active Substance: HUMAN IMMUNOGLOBULIN G
     Dosage: 200 GRAM, Q4WEEKS
     Route: 042
     Dates: start: 20160408
  9. AMOXICILLIN [Concomitant]
     Active Substance: AMOXICILLIN
  10. CREON [Concomitant]
     Active Substance: PANCRELIPASE AMYLASE\PANCRELIPASE LIPASE\PANCRELIPASE PROTEASE
  11. ENTOCORT EC [Concomitant]
     Active Substance: BUDESONIDE
  12. DOXYCYCLINE [Concomitant]
     Active Substance: DOXYCYCLINE
  13. AUGMENTIN [Concomitant]
     Active Substance: AMOXICILLIN\CLAVULANATE POTASSIUM
  14. SINGULAIR [Concomitant]
     Active Substance: MONTELUKAST SODIUM
  15. SYMBICORT [Concomitant]
     Active Substance: BUDESONIDE\FORMOTEROL FUMARATE DIHYDRATE
  16. ALBUTEROL SULFATE [Concomitant]
     Active Substance: ALBUTEROL SULFATE
  17. ZYRTEC [Concomitant]
     Active Substance: CETIRIZINE HYDROCHLORIDE
  18. CELECOXIB [Concomitant]
     Active Substance: CELECOXIB
  19. RANITIDINE [Concomitant]
     Active Substance: RANITIDINE
  20. XOPENEX [Concomitant]
     Active Substance: LEVALBUTEROL HYDROCHLORIDE
  21. FERROUS SULFATE [Concomitant]
     Active Substance: FERROUS SULFATE
  22. ACETAMINOPHEN [Concomitant]
     Active Substance: ACETAMINOPHEN
  23. DIPHENHYDRAMINE [Concomitant]
     Active Substance: DIPHENHYDRAMINE
  24. HEPARIN [Concomitant]
     Active Substance: HEPARIN SODIUM
  25. LIDOCAINE [Concomitant]
     Active Substance: LIDOCAINE
  26. SODIUM CHLORIDE [Concomitant]
     Active Substance: SODIUM CHLORIDE
  27. EPINEPHRINE [Concomitant]
     Active Substance: EPINEPHRINE
  28. SOLIQUA 100/33 [Concomitant]
     Active Substance: INSULIN GLARGINE\LIXISENATIDE
  29. ESTRADIOL [Concomitant]
     Active Substance: ESTRADIOL
     Dosage: UNK, 1/WEEK
  30. PROGESTERONE [Concomitant]
     Active Substance: PROGESTERONE
  31. METFORMIN HYDROCHLORIDE [Concomitant]
     Active Substance: METFORMIN HYDROCHLORIDE
  32. CYCLOSPORINE [Concomitant]
     Active Substance: CYCLOSPORINE
  33. LEVALBUTEROL TARTRATE [Concomitant]
     Active Substance: LEVALBUTEROL TARTRATE
  34. IBUPROFEN [Concomitant]
     Active Substance: IBUPROFEN
  35. INSULIN NOS [Concomitant]
     Active Substance: INSULIN NOS
  36. PFIZER-BIONTECH COVID-19 VACCINE [Concomitant]
     Active Substance: TOZINAMERAN
  37. PROMETHAZINE HYDROCHLORIDE [Concomitant]
     Active Substance: PROMETHAZINE HYDROCHLORIDE
  38. GLIMEPIRIDE [Concomitant]
     Active Substance: GLIMEPIRIDE
  39. TELMISARTAN [Concomitant]
     Active Substance: TELMISARTAN
  40. OXYGEN [Concomitant]
     Active Substance: OXYGEN
     Dosage: UNK
  41. BENZONATATE [Concomitant]
     Active Substance: BENZONATATE

REACTIONS (14)
  - Aplasia pure red cell [Unknown]
  - COVID-19 pneumonia [Unknown]
  - Haemoglobin decreased [Unknown]
  - Adverse drug reaction [Unknown]
  - Therapy interrupted [Unknown]
  - Infusion related reaction [Recovered/Resolved]
  - Animal scratch [Unknown]
  - Heart rate increased [Unknown]
  - Respiratory tract infection [Unknown]
  - Dyspnoea [Unknown]
  - Dizziness [Recovered/Resolved]
  - Diarrhoea [Unknown]
  - Pyrexia [Unknown]
  - Sinusitis [Unknown]

NARRATIVE: CASE EVENT DATE: 20220207
